FAERS Safety Report 11822367 (Version 5)
Quarter: 2017Q1

REPORT INFORMATION
  Report Type: Spontaneous
  Country: US (occurrence: US)
  Receive Date: 20151210
  Receipt Date: 20170314
  Transmission Date: 20170428
  Serious: No
  Sender: FDA-Public Use
  Company Number: US-JNJFOC-20150618392

PATIENT
  Sex: Male

DRUGS (10)
  1. BIOTIN [Concomitant]
     Active Substance: BIOTIN
  2. IMBRUVICA [Suspect]
     Active Substance: IBRUTINIB
     Indication: ACUTE LYMPHOCYTIC LEUKAEMIA
     Route: 048
     Dates: start: 20141010
  3. CALCIUM [Concomitant]
     Active Substance: CALCIUM
  4. ALLOPURINOL. [Concomitant]
     Active Substance: ALLOPURINOL
     Indication: ARTHRALGIA
  5. AMLODIPINE [Concomitant]
     Active Substance: AMLODIPINE BESYLATE
  6. NORVASC [Concomitant]
     Active Substance: AMLODIPINE BESYLATE
  7. IMBRUVICA [Suspect]
     Active Substance: IBRUTINIB
     Indication: NON-HODGKIN^S LYMPHOMA STAGE IV
     Route: 048
     Dates: start: 20141010
  8. ZITHROMAX [Concomitant]
     Active Substance: AZITHROMYCIN DIHYDRATE
  9. ZITHROMAX [Concomitant]
     Active Substance: AZITHROMYCIN DIHYDRATE
  10. IMBRUVICA [Suspect]
     Active Substance: IBRUTINIB
     Indication: CHRONIC LYMPHOCYTIC LEUKAEMIA
     Route: 048
     Dates: start: 20141010

REACTIONS (7)
  - Skin mass [Unknown]
  - Joint swelling [Recovering/Resolving]
  - Mass [Unknown]
  - Erythema [Unknown]
  - Nail growth abnormal [Recovering/Resolving]
  - Arthralgia [Unknown]
  - Onychoclasis [Recovering/Resolving]

NARRATIVE: CASE EVENT DATE: 2014
